FAERS Safety Report 23228591 (Version 2)
Quarter: 2024Q1

REPORT INFORMATION
  Report Type: Spontaneous
  Country: US (occurrence: US)
  Receive Date: 20231125
  Receipt Date: 20240103
  Transmission Date: 20240410
  Serious: Yes (Other)
  Sender: FDA-Public Use
  Company Number: US-BAYER-2023A163727

PATIENT
  Age: 30 Year
  Sex: Male

DRUGS (1)
  1. KOVALTRY [Suspect]
     Active Substance: ANTIHEMOPHILIC FACTOR, HUMAN RECOMBINANT
     Dosage: 2500 IU
     Route: 042
     Dates: start: 20231111

REACTIONS (5)
  - Loss of consciousness [None]
  - Head injury [None]
  - Headache [None]
  - Nausea [None]
  - Concussion [None]

NARRATIVE: CASE EVENT DATE: 20231111
